FAERS Safety Report 5402659-9 (Version None)
Quarter: 2007Q3

REPORT INFORMATION
  Report Type: 
  Country: None (occurrence: None)
  Receive Date: 20070730
  Receipt Date: 20070730
  Transmission Date: 20080115
  Serious: Yes (Other)
  Sender: FDA-Public Use
  Company Number: None

PATIENT
  Age: 50 Year
  Sex: Male
  Weight: 103.4201 kg

DRUGS (1)
  1. ELIDEL [Suspect]
     Indication: SEBORRHOEIC DERMATITIS
     Dosage: UNMEASURED FACIAL APPLICATION DAILY WITH SHAVING TOP
     Route: 061
     Dates: start: 20050425, end: 20050915

REACTIONS (1)
  - BASAL CELL CARCINOMA [None]
